FAERS Safety Report 4778358-3 (Version None)
Quarter: 2005Q3

REPORT INFORMATION
  Report Type: 
  Country: None (occurrence: None)
  Receive Date: 20050926
  Receipt Date: 20050919
  Transmission Date: 20060218
  Serious: Yes (Hospitalization)
  Sender: FDA-Public Use
  Company Number: US-JNJFOC-20050600294

PATIENT
  Sex: Female
  Weight: 49.44 kg

DRUGS (6)
  1. DURAGESIC-100 [Suspect]
     Route: 062
  2. ACTIQ [Suspect]
     Indication: PELVIC PAIN
  3. SOMA [Concomitant]
  4. PROSOM [Concomitant]
     Indication: SLEEP DISORDER
  5. SINGULAIR [Concomitant]
  6. LIDODERM PATCH [Concomitant]
     Indication: PAIN

REACTIONS (11)
  - ANOREXIA [None]
  - APPLICATION SITE DERMATITIS [None]
  - APPLICATION SITE URTICARIA [None]
  - DEHYDRATION [None]
  - DIARRHOEA [None]
  - FEELING HOT AND COLD [None]
  - PYREXIA [None]
  - THERAPEUTIC RESPONSE DECREASED [None]
  - TREMOR [None]
  - VOMITING [None]
  - WEIGHT DECREASED [None]
